FAERS Safety Report 20375803 (Version 1)
Quarter: 2022Q1

REPORT INFORMATION
  Report Type: Spontaneous
  Country: US (occurrence: None)
  Receive Date: 20220125
  Receipt Date: 20220125
  Transmission Date: 20220424
  Serious: No
  Sender: FDA-Public Use
  Company Number: None

PATIENT
  Sex: Female

DRUGS (4)
  1. GONAL-F RFF REDI-JECT [Suspect]
     Active Substance: FOLLITROPIN
     Indication: Assisted fertilisation
     Dosage: FREQUENCY : DAILY;?
     Route: 058
  2. CETROTIDE [Suspect]
     Active Substance: CETRORELIX ACETATE
     Indication: Assisted fertilisation
     Dosage: FREQUENCY : DAILY;?
     Route: 058
  3. SULFASALAZINE [Concomitant]
     Active Substance: SULFASALAZINE
  4. HUMIRA [Concomitant]
     Active Substance: ADALIMUMAB

REACTIONS (1)
  - Rheumatoid arthritis [None]
